FAERS Safety Report 9284529 (Version 2)
Quarter: 2013Q2

REPORT INFORMATION
  Report Type: Spontaneous
  Country: US (occurrence: US)
  Receive Date: 20130510
  Receipt Date: 20130530
  Transmission Date: 20140414
  Serious: Yes (Other)
  Sender: FDA-Public Use
  Company Number: US-ALEXION PHARMACEUTICALS INC.-A201301015

PATIENT
  Age: 62 Year
  Sex: Female
  Weight: 47.2 kg

DRUGS (21)
  1. SOLIRIS 300MG [Suspect]
     Indication: HAEMOLYTIC URAEMIC SYNDROME
     Dosage: 3 DOSES
     Route: 042
     Dates: start: 20130301
  2. XANAX [Concomitant]
     Dosage: 0.25 MG, TID, PRN
  3. TYLENOL [Concomitant]
     Dosage: 325 MG 1-2 Q4H, PRN
  4. NORCO 10/325 [Concomitant]
     Dosage: 1 DF Q4H
  5. ULTRAM [Concomitant]
     Dosage: 50 MG, PRN, Q8H
  6. NEPHROVITE [Concomitant]
     Dosage: 1 DF, QD
  7. NIFEDIPINE ER [Concomitant]
     Dosage: 60 MG, QD, IN AM
  8. PAXIL [Concomitant]
     Dosage: 10 MG, QD
  9. SENNA-S [Concomitant]
     Dosage: 2 DF, QD
  10. LISINOPRIL [Concomitant]
     Dosage: 20 MG, BID
  11. METOPROLOL [Concomitant]
     Dosage: 100 MG, BID
  12. OMEPRAZOLE [Concomitant]
     Dosage: 20 MG, BID
  13. URSODIOL [Concomitant]
     Dosage: 300 MG, BID
  14. CALCIUM [Concomitant]
     Dosage: 1 DF, TID
  15. MIRALAX [Concomitant]
     Dosage: 17 G, QD
  16. AMITRIPTYLINE [Concomitant]
     Dosage: 10 MG, QD, AT HS
  17. ATORVASTATIN [Concomitant]
     Dosage: 10 MG, QD, AT HS
  18. NIFEDIPINE [Concomitant]
     Dosage: 30 MG, QD, AT HS
  19. LOVENOX [Concomitant]
     Dosage: 0.6 ML, QD
     Route: 058
  20. KLONOPIN [Concomitant]
     Dosage: 0.5 MG, BID
  21. CATAPRES-TTS-2 [Concomitant]
     Dosage: 1 DF, QW
     Route: 062

REACTIONS (2)
  - Pleural effusion [Recovering/Resolving]
  - Atelectasis [Recovering/Resolving]
